FAERS Safety Report 12433786 (Version 2)
Quarter: 2016Q2

REPORT INFORMATION
  Report Type: Spontaneous
  Country: RS (occurrence: RS)
  Receive Date: 20160603
  Receipt Date: 20160620
  Transmission Date: 20160815
  Serious: Yes (Hospitalization, Other)
  Sender: FDA-Public Use
  Company Number: RS-ASTELLAS-2015US020678

PATIENT
  Sex: Male

DRUGS (9)
  1. PROGRAF [Suspect]
     Active Substance: TACROLIMUS\TACROLIMUS ANHYDROUS
     Indication: RENAL TRANSPLANT
     Dosage: 0.5 MG, TWICE DAILY
     Route: 065
  2. PRONISON [Concomitant]
     Active Substance: PREDNISONE
     Indication: IMMUNOSUPPRESSION
     Dosage: UNK UNK, UNKNOWN FREQ.
     Route: 065
  3. LASIX [Concomitant]
     Active Substance: FUROSEMIDE
     Indication: PRODUCT USED FOR UNKNOWN INDICATION
     Dosage: ONE TABLE SPOON,  ONCE DAILY
     Route: 065
  4. ADVAGRAF [Suspect]
     Active Substance: TACROLIMUS
     Indication: RENAL TRANSPLANT
     Dosage: 1 DF, ONCE DAILY ONCE DAILY (IN THE MORNING ON AN EMPTY STOMACH)
     Route: 065
  5. CELLCEPT [Suspect]
     Active Substance: MYCOPHENOLATE MOFETIL\MYCOPHENOLATE MOFETIL HYDROCHLORIDE
     Indication: IMMUNOSUPPRESSION
     Dosage: UNK UNK, TWICE DAILY(750 MG IN THE MORNING AND 500MG IN THE EVENING)
     Route: 065
  6. PRONISON [Concomitant]
     Active Substance: PREDNISONE
     Dosage: 1/2 TABLESPOON, ONCE DAILY
     Route: 065
  7. PROGRAF [Suspect]
     Active Substance: TACROLIMUS\TACROLIMUS ANHYDROUS
     Dosage: 0.5 MG, ONCE DAILY
     Route: 065
     Dates: start: 20160526
  8. ALOPURINOL [Concomitant]
     Active Substance: ALLOPURINOL
     Indication: PRODUCT USED FOR UNKNOWN INDICATION
     Dosage: ONE TABLESPOON, ONCE DAILY
     Route: 065
  9. MONOPRIL [Concomitant]
     Active Substance: FOSINOPRIL SODIUM
     Indication: PRODUCT USED FOR UNKNOWN INDICATION
     Dosage: UNK UNK, UNKNOWN FREQ.
     Route: 065

REACTIONS (22)
  - White blood cell count decreased [Unknown]
  - Pain in extremity [Recovered/Resolved]
  - Hepatitis B [Not Recovered/Not Resolved]
  - Pruritus [Recovering/Resolving]
  - Skin papilloma [Recovered/Resolved]
  - Transaminases increased [Unknown]
  - Diarrhoea infectious [Recovered/Resolved]
  - Diarrhoea [Recovered/Resolved]
  - Blood glucose increased [Unknown]
  - Blood urea increased [Unknown]
  - Arthralgia [Recovering/Resolving]
  - Acne [Recovered/Resolved]
  - Blood creatinine increased [Unknown]
  - Immunosuppressant drug level increased [Unknown]
  - Frequent bowel movements [Recovering/Resolving]
  - Malaise [Unknown]
  - Immunosuppressant drug level increased [Unknown]
  - Chills [Unknown]
  - Arrhythmia [Not Recovered/Not Resolved]
  - Joint swelling [Recovered/Resolved]
  - Peripheral swelling [Not Recovered/Not Resolved]
  - Tremor [Recovering/Resolving]

NARRATIVE: CASE EVENT DATE: 2003
